FAERS Safety Report 5763687-7 (Version None)
Quarter: 2008Q2

REPORT INFORMATION
  Report Type: 
  Country: None (occurrence: None)
  Receive Date: 20080610
  Receipt Date: 20080318
  Transmission Date: 20081010
  Serious: Yes (Other)
  Sender: FDA-Public Use
  Company Number: GB-BAYER-200819030GPV

PATIENT

DRUGS (9)
  1. CAMPATH [Suspect]
     Indication: RELAPSING-REMITTING MULTIPLE SCLEROSIS
     Route: 042
  2. CAMPATH [Suspect]
     Route: 042
  3. CAMPATH [Suspect]
     Route: 042
  4. CAMPATH [Suspect]
     Route: 042
  5. CAMPATH [Suspect]
     Route: 042
  6. CAMPATH [Suspect]
     Route: 042
  7. CAMPATH [Suspect]
     Route: 042
  8. METHYLPREDNISOLONE [Concomitant]
     Indication: RELAPSING-REMITTING MULTIPLE SCLEROSIS
     Route: 042
  9. METHYLPREDNISOLONE [Concomitant]
     Route: 042

REACTIONS (30)
  - ALANINE AMINOTRANSFERASE INCREASED [None]
  - ANTI-THYROID ANTIBODY POSITIVE [None]
  - ANTINUCLEAR ANTIBODY POSITIVE [None]
  - ASPARTATE AMINOTRANSFERASE INCREASED [None]
  - ATAXIA [None]
  - CERVICAL DYSPLASIA [None]
  - CHEST DISCOMFORT [None]
  - CHILLS [None]
  - CYTOKINE RELEASE SYNDROME [None]
  - DYSPNOEA [None]
  - FUNGAL SKIN INFECTION [None]
  - HEADACHE [None]
  - HERPES ZOSTER [None]
  - HYPERTHYROIDISM [None]
  - HYPOAESTHESIA [None]
  - HYPOTHYROIDISM [None]
  - LIVER FUNCTION TEST ABNORMAL [None]
  - MOUTH ULCERATION [None]
  - MUSCULAR WEAKNESS [None]
  - ORAL CANDIDIASIS [None]
  - PARAPSORIASIS [None]
  - PYREXIA [None]
  - RASH [None]
  - RESPIRATORY TRACT INFECTION [None]
  - SKIN LESION [None]
  - SKIN PAPILLOMA [None]
  - THROMBOCYTOPENIA [None]
  - URINARY TRACT INFECTION [None]
  - VAGINAL CANDIDIASIS [None]
  - WHEEZING [None]
